FAERS Safety Report 6551988-4 (Version None)
Quarter: 2010Q1

REPORT INFORMATION
  Report Type: 
  Country: None (occurrence: None)
  Receive Date: 20100126
  Receipt Date: 20100119
  Transmission Date: 20100710
  Serious: Yes (Death)
  Sender: FDA-Public Use
  Company Number: US-BAYER-201011808NA

PATIENT
  Sex: Female

DRUGS (2)
  1. YAZ [Suspect]
     Indication: DRUG USE FOR UNKNOWN INDICATION
     Route: 048
     Dates: end: 20071125
  2. YASMIN [Suspect]
     Indication: DRUG USE FOR UNKNOWN INDICATION
     Route: 048
     Dates: end: 20071125

REACTIONS (1)
  - PULMONARY EMBOLISM [None]
